FAERS Safety Report 18012865 (Version 1)
Quarter: 2020Q3

REPORT INFORMATION
  Report Type: Spontaneous
  Country: FR (occurrence: FR)
  Receive Date: 20200713
  Receipt Date: 20200713
  Transmission Date: 20201103
  Serious: Yes (Hospitalization)
  Sender: FDA-Public Use
  Company Number: FR-ACCORD-189689

PATIENT
  Age: 55 Year
  Sex: Female

DRUGS (13)
  1. BUDESONIDE. [Concomitant]
     Active Substance: BUDESONIDE
  2. FUMAFER [Concomitant]
     Active Substance: FERROUS FUMARATE
  3. TRESIBA [Concomitant]
     Active Substance: INSULIN DEGLUDEC
  4. ATORVASTATIN/ATORVASTATIN CALCIUM [Suspect]
     Active Substance: ATORVASTATIN CALCIUM
     Indication: DYSLIPIDAEMIA
     Route: 048
     Dates: start: 20200611
  5. METOPIRONE [Suspect]
     Active Substance: METYRAPONE
     Indication: PITUITARY-DEPENDENT CUSHING^S SYNDROME
     Dosage: STRENGTH 250 MG
     Route: 048
     Dates: start: 20200612, end: 20200620
  6. APROVEL [Suspect]
     Active Substance: IRBESARTAN
     Indication: HYPERTENSION
     Route: 048
     Dates: start: 20200611
  7. PARACETAMOL [Concomitant]
     Active Substance: ACETAMINOPHEN
  8. NOVORAPID [Concomitant]
     Active Substance: INSULIN ASPART
  9. PREGABALIN. [Concomitant]
     Active Substance: PREGABALIN
  10. VICTOZA [Concomitant]
     Active Substance: LIRAGLUTIDE
  11. SALBUTAMOL [Concomitant]
     Active Substance: ALBUTEROL
  12. ALLOPURINOL. [Concomitant]
     Active Substance: ALLOPURINOL
  13. COLECALCIFEROL [Concomitant]
     Active Substance: CHOLECALCIFEROL

REACTIONS (2)
  - Hepatitis [Not Recovered/Not Resolved]
  - Hepatic encephalopathy [Not Recovered/Not Resolved]

NARRATIVE: CASE EVENT DATE: 20200619
